FAERS Safety Report 25500287 (Version 6)
Quarter: 2025Q3

REPORT INFORMATION
  Report Type: Report from Study
  Country: EU (occurrence: EU)
  Receive Date: 20250701
  Receipt Date: 20250917
  Transmission Date: 20251020
  Serious: Yes (Life-Threatening, Hospitalization, Other)
  Sender: AUROBINDO
  Company Number: EU-AUROBINDO-AUR-APL-2025-033081

PATIENT
  Age: 47 Year
  Sex: Male

DRUGS (87)
  1. BELINOSTAT [Suspect]
     Active Substance: BELINOSTAT
     Indication: Angioimmunoblastic T-cell lymphoma
     Route: 065
     Dates: start: 20250616, end: 20250616
  2. BELINOSTAT [Suspect]
     Active Substance: BELINOSTAT
     Indication: Peripheral T-cell lymphoma unspecified stage IV
     Route: 065
     Dates: start: 20250617, end: 20250617
  3. BELINOSTAT [Suspect]
     Active Substance: BELINOSTAT
     Route: 065
     Dates: start: 20250618, end: 20250618
  4. BELINOSTAT [Suspect]
     Active Substance: BELINOSTAT
     Route: 065
     Dates: start: 20250619, end: 20250619
  5. BELINOSTAT [Suspect]
     Active Substance: BELINOSTAT
     Route: 042
     Dates: start: 20250616, end: 20250620
  6. BELINOSTAT [Suspect]
     Active Substance: BELINOSTAT
     Route: 065
     Dates: start: 20250709, end: 20250709
  7. BELINOSTAT [Suspect]
     Active Substance: BELINOSTAT
     Route: 065
     Dates: start: 20250620, end: 20250620
  8. BELINOSTAT [Suspect]
     Active Substance: BELINOSTAT
     Route: 065
     Dates: start: 20250707, end: 20250707
  9. BELINOSTAT [Suspect]
     Active Substance: BELINOSTAT
     Route: 065
     Dates: start: 20250708, end: 20250708
  10. BELINOSTAT [Suspect]
     Active Substance: BELINOSTAT
     Route: 065
     Dates: start: 20250710, end: 20250710
  11. BELINOSTAT [Suspect]
     Active Substance: BELINOSTAT
     Route: 065
     Dates: start: 20250711, end: 20250711
  12. BELINOSTAT [Suspect]
     Active Substance: BELINOSTAT
     Route: 065
     Dates: start: 20250728, end: 20250728
  13. BELINOSTAT [Suspect]
     Active Substance: BELINOSTAT
     Route: 065
     Dates: start: 20250729, end: 20250729
  14. BELINOSTAT [Suspect]
     Active Substance: BELINOSTAT
     Route: 065
     Dates: start: 20250730, end: 20250730
  15. BELINOSTAT [Suspect]
     Active Substance: BELINOSTAT
     Route: 065
     Dates: start: 20250731, end: 20250731
  16. BELINOSTAT [Suspect]
     Active Substance: BELINOSTAT
     Route: 065
     Dates: start: 20250801, end: 20250801
  17. BELINOSTAT [Suspect]
     Active Substance: BELINOSTAT
     Route: 065
     Dates: start: 20250818, end: 20250818
  18. BELINOSTAT [Suspect]
     Active Substance: BELINOSTAT
     Route: 065
     Dates: start: 20250819, end: 20250819
  19. BELINOSTAT [Suspect]
     Active Substance: BELINOSTAT
     Route: 065
     Dates: start: 20250820, end: 20250820
  20. BELINOSTAT [Suspect]
     Active Substance: BELINOSTAT
     Route: 065
     Dates: start: 20250821, end: 20250821
  21. BELINOSTAT [Suspect]
     Active Substance: BELINOSTAT
     Route: 065
     Dates: start: 20250822, end: 20250822
  22. DOXORUBICIN [Suspect]
     Active Substance: DOXORUBICIN
     Indication: Angioimmunoblastic T-cell lymphoma
     Route: 065
     Dates: start: 20250616, end: 20250616
  23. DOXORUBICIN [Suspect]
     Active Substance: DOXORUBICIN
     Indication: Peripheral T-cell lymphoma unspecified stage IV
     Route: 042
     Dates: start: 20250616, end: 20250620
  24. DOXORUBICIN [Suspect]
     Active Substance: DOXORUBICIN
     Route: 065
     Dates: start: 20250707, end: 20250707
  25. DOXORUBICIN [Suspect]
     Active Substance: DOXORUBICIN
     Route: 065
     Dates: start: 20250728, end: 20250728
  26. DOXORUBICIN [Suspect]
     Active Substance: DOXORUBICIN
     Route: 065
     Dates: start: 20250818, end: 20250818
  27. CYCLOPHOSPHAMIDE [Suspect]
     Active Substance: CYCLOPHOSPHAMIDE
     Indication: Angioimmunoblastic T-cell lymphoma
     Route: 065
     Dates: start: 20250616, end: 20250616
  28. CYCLOPHOSPHAMIDE [Suspect]
     Active Substance: CYCLOPHOSPHAMIDE
     Indication: Peripheral T-cell lymphoma unspecified stage IV
     Route: 042
     Dates: start: 20250616, end: 20250620
  29. CYCLOPHOSPHAMIDE [Suspect]
     Active Substance: CYCLOPHOSPHAMIDE
     Route: 065
     Dates: start: 20250707, end: 20250707
  30. CYCLOPHOSPHAMIDE [Suspect]
     Active Substance: CYCLOPHOSPHAMIDE
     Route: 065
     Dates: start: 20250728, end: 20250728
  31. CYCLOPHOSPHAMIDE [Suspect]
     Active Substance: CYCLOPHOSPHAMIDE
     Route: 065
     Dates: start: 20250818, end: 20250818
  32. VINCRISTINE [Suspect]
     Active Substance: VINCRISTINE
     Indication: Peripheral T-cell lymphoma unspecified stage IV
     Route: 042
     Dates: start: 20250616, end: 20250620
  33. ONCOVIN [Suspect]
     Active Substance: VINCRISTINE SULFATE
     Indication: Angioimmunoblastic T-cell lymphoma
     Route: 065
     Dates: start: 20250616, end: 20250616
  34. ONCOVIN [Suspect]
     Active Substance: VINCRISTINE SULFATE
     Route: 065
     Dates: start: 20250707, end: 20250707
  35. ONCOVIN [Suspect]
     Active Substance: VINCRISTINE SULFATE
     Route: 065
     Dates: start: 20250728, end: 20250728
  36. ONCOVIN [Suspect]
     Active Substance: VINCRISTINE SULFATE
     Route: 065
     Dates: start: 20250818, end: 20250818
  37. PREDNISONE [Suspect]
     Active Substance: PREDNISONE
     Indication: Angioimmunoblastic T-cell lymphoma
     Route: 065
     Dates: start: 20250616
  38. PREDNISONE [Suspect]
     Active Substance: PREDNISONE
     Route: 065
     Dates: start: 20250617
  39. PREDNISONE [Suspect]
     Active Substance: PREDNISONE
     Route: 065
     Dates: start: 20250618
  40. PREDNISONE [Suspect]
     Active Substance: PREDNISONE
     Route: 065
     Dates: start: 20250619
  41. PREDNISONE [Suspect]
     Active Substance: PREDNISONE
     Route: 065
     Dates: start: 20250620
  42. PREDNISONE [Suspect]
     Active Substance: PREDNISONE
     Route: 065
     Dates: start: 20250707
  43. PREDNISONE [Suspect]
     Active Substance: PREDNISONE
     Route: 065
     Dates: start: 20250708
  44. PREDNISONE [Suspect]
     Active Substance: PREDNISONE
     Route: 065
     Dates: start: 20250709
  45. PREDNISONE [Suspect]
     Active Substance: PREDNISONE
     Route: 065
     Dates: start: 20250710
  46. PREDNISONE [Suspect]
     Active Substance: PREDNISONE
     Route: 065
     Dates: start: 20250711
  47. PREDNISONE [Suspect]
     Active Substance: PREDNISONE
     Route: 065
     Dates: start: 20250728
  48. PREDNISONE [Suspect]
     Active Substance: PREDNISONE
     Route: 065
     Dates: start: 20250729
  49. PREDNISONE [Suspect]
     Active Substance: PREDNISONE
     Route: 065
     Dates: start: 20250730
  50. PREDNISONE [Suspect]
     Active Substance: PREDNISONE
     Route: 065
     Dates: start: 20250731
  51. PREDNISONE [Suspect]
     Active Substance: PREDNISONE
     Route: 065
     Dates: start: 20250801
  52. PREDNISONE [Suspect]
     Active Substance: PREDNISONE
     Route: 065
     Dates: start: 20250818
  53. PREDNISONE [Suspect]
     Active Substance: PREDNISONE
     Route: 065
     Dates: start: 20250819
  54. PREDNISONE [Suspect]
     Active Substance: PREDNISONE
     Route: 065
     Dates: start: 20250820
  55. PREDNISONE [Suspect]
     Active Substance: PREDNISONE
     Route: 065
     Dates: start: 20250821
  56. PREDNISONE [Suspect]
     Active Substance: PREDNISONE
     Route: 065
     Dates: start: 20250822
  57. PREDNISONE [Concomitant]
     Active Substance: PREDNISONE
     Indication: Pyrexia
     Dosage: 2.5 MILLIGRAM, ONCE A DAY
     Route: 048
     Dates: start: 2025, end: 20250529
  58. PREDNISONE [Concomitant]
     Active Substance: PREDNISONE
     Indication: Peripheral T-cell lymphoma unspecified stage IV
     Dosage: 2.5 MILLIGRAM, ONCE A DAY
     Route: 048
     Dates: start: 20250602
  59. PREDNISONE [Concomitant]
     Active Substance: PREDNISONE
     Dosage: 2.5 MILLIGRAM, ONCE A DAY
     Route: 048
     Dates: start: 20250603, end: 20250615
  60. PREDNISONE [Concomitant]
     Active Substance: PREDNISONE
     Route: 048
     Dates: start: 20250616
  61. SULFAMETHOXAZOLE\TRIMETHOPRIM [Concomitant]
     Active Substance: SULFAMETHOXAZOLE\TRIMETHOPRIM
     Indication: Infection prophylaxis
     Route: 048
     Dates: start: 2025
  62. ACYCLOVIR [Concomitant]
     Active Substance: ACYCLOVIR
     Indication: Infection prophylaxis
     Dosage: 800 MILLIGRAM, ONCE A DAY
     Route: 048
     Dates: start: 2025
  63. PANTOPRAZOLE SODIUM [Concomitant]
     Active Substance: PANTOPRAZOLE SODIUM
     Indication: Prophylaxis
     Dosage: 1 DOSAGE FORM, ONCE A DAY
     Route: 048
     Dates: start: 2025
  64. CALCIUM CARBONATE [Concomitant]
     Active Substance: CALCIUM CARBONATE
     Indication: Calcium deficiency
     Dosage: 1 DOSAGE FORM, ONCE A DAY
     Route: 048
     Dates: start: 2025
  65. RIVAROXABAN [Concomitant]
     Active Substance: RIVAROXABAN
     Indication: Prophylaxis
     Dosage: 10 MILLIGRAM, ONCE A DAY
     Route: 048
     Dates: start: 2025, end: 20250529
  66. RIVAROXABAN [Concomitant]
     Active Substance: RIVAROXABAN
     Dosage: 10 MILLIGRAM, ONCE A DAY
     Route: 048
     Dates: start: 20250609, end: 20250617
  67. DEXAMETHASONE [Concomitant]
     Active Substance: DEXAMETHASONE
     Indication: Product used for unknown indication
     Dosage: 20 MILLIGRAM, ONCE A DAY
     Route: 048
     Dates: start: 20250529, end: 20250601
  68. FOLIC ACID [Concomitant]
     Active Substance: FOLIC ACID
     Indication: Prophylaxis
     Dosage: 2.5 MILLIGRAM, ONCE A DAY
     Route: 048
     Dates: start: 20250604
  69. FOLIC ACID [Concomitant]
     Active Substance: FOLIC ACID
     Dosage: 5 MILLIGRAM, ONCE A DAY
     Route: 048
     Dates: start: 20250604
  70. VITAMIN B12 [Concomitant]
     Active Substance: CYANOCOBALAMIN
     Indication: Prophylaxis
     Route: 030
     Dates: start: 20250605, end: 20250605
  71. PRIMPERAN [Concomitant]
     Active Substance: METOCLOPRAMIDE HYDROCHLORIDE
     Indication: Prophylaxis of nausea and vomiting
     Route: 048
     Dates: start: 20250616
  72. ONDANSETRON [Concomitant]
     Active Substance: ONDANSETRON
     Indication: Nausea
     Route: 042
     Dates: start: 20250619, end: 20250620
  73. ONDANSETRON [Concomitant]
     Active Substance: ONDANSETRON
     Indication: Gastrointestinal disorder
     Dosage: 8 MILLIGRAM, 3 TIMES A DAY
     Route: 048
     Dates: start: 20250616, end: 20250619
  74. MEROPENEM [Concomitant]
     Active Substance: MEROPENEM
     Indication: Pneumonia streptococcal
     Dosage: 2 MILLIGRAM, 3 TIMES A DAY
     Route: 048
     Dates: start: 20250619, end: 202506
  75. CEFTRIAXONE [Concomitant]
     Active Substance: CEFTRIAXONE
     Indication: Pneumonia streptococcal
     Dosage: 1 GRAM, TWO TIMES A DAY
     Route: 042
     Dates: start: 20250628
  76. LEVOFLOXACIN [Concomitant]
     Active Substance: LEVOFLOXACIN
     Indication: Pneumonia streptococcal
     Dosage: 750 MILLIGRAM, ONCE A DAY
     Route: 048
     Dates: start: 20250628
  77. FILGRASTIM [Concomitant]
     Active Substance: FILGRASTIM
     Indication: Neutropenia
     Dosage: 0.5 MILLILITER, ONCE A DAY
     Route: 058
     Dates: start: 20250618, end: 20250619
  78. FILGRASTIM [Concomitant]
     Active Substance: FILGRASTIM
     Dosage: 0.5 MILLILITER, ONCE A DAY
     Route: 058
     Dates: start: 20250621, end: 20250621
  79. FILGRASTIM [Concomitant]
     Active Substance: FILGRASTIM
     Dosage: 0.5 MILLILITER, ONCE A DAY
     Route: 058
     Dates: start: 20250707, end: 20250707
  80. FILGRASTIM [Concomitant]
     Active Substance: FILGRASTIM
     Route: 058
     Dates: start: 20250804, end: 20250808
  81. Hibor [Concomitant]
     Indication: Thrombosis prophylaxis
     Dosage: 5000 INTERNATIONAL UNIT, ONCE A DAY
     Route: 058
     Dates: start: 20250530, end: 20250608
  82. ESCITALOPRAM [Concomitant]
     Active Substance: ESCITALOPRAM OXALATE
     Indication: Antidepressant therapy
     Dosage: 20 MILLIGRAM, ONCE A DAY
     Route: 048
     Dates: start: 2025
  83. MESNA [Concomitant]
     Active Substance: MESNA
     Indication: Urinary tract infection
     Route: 058
     Dates: start: 20250616, end: 20250616
  84. NYSTATIN [Concomitant]
     Active Substance: NYSTATIN
     Indication: Infection prophylaxis
     Route: 050
     Dates: start: 20250616
  85. AZITHROMYCIN [Concomitant]
     Active Substance: AZITHROMYCIN
     Indication: Infection prophylaxis
     Dosage: 250 MILLIGRAM, ONCE A DAY
     Route: 048
     Dates: start: 20250707
  86. FILGRASTIM [Concomitant]
     Active Substance: FILGRASTIM
     Indication: Product used for unknown indication
     Dosage: 0.5 MILLIGRAM, ONCE A DAY
     Route: 058
     Dates: start: 20250623, end: 20250625
  87. FILGRASTIM [Concomitant]
     Active Substance: FILGRASTIM
     Dosage: 0.5 MILLIGRAM, ONCE A DAY
     Route: 058
     Dates: start: 20250718, end: 20250720

REACTIONS (6)
  - Neutropenia [Recovered/Resolved]
  - Pneumococcal bacteraemia [Recovered/Resolved]
  - Nausea [Recovered/Resolved]
  - Vomiting [Recovered/Resolved]
  - Pain in jaw [Recovered/Resolved]
  - Asthenia [Not Recovered/Not Resolved]

NARRATIVE: CASE EVENT DATE: 20250529
